FAERS Safety Report 5553362-6 (Version None)
Quarter: 2007Q4

REPORT INFORMATION
  Report Type: 
  Country: None (occurrence: None)
  Receive Date: 20071212
  Receipt Date: 20071212
  Transmission Date: 20080405
  Serious: No
  Sender: FDA-Public Use
  Company Number: None

PATIENT
  Age: 44 Year
  Sex: Male

DRUGS (1)
  1. MELOXICAM [Suspect]
     Indication: NECK PAIN
     Dosage: 15 G ONCE A DAY PO
     Route: 048
     Dates: start: 20070601

REACTIONS (2)
  - ABDOMINAL PAIN UPPER [None]
  - THERAPEUTIC RESPONSE UNEXPECTED [None]
